FAERS Safety Report 25968411 (Version 1)
Quarter: 2025Q4

REPORT INFORMATION
  Report Type: Spontaneous
  Country: GB (occurrence: GB)
  Receive Date: 20251028
  Receipt Date: 20251028
  Transmission Date: 20260118
  Serious: Yes (Other)
  Sender: RANBAXY
  Company Number: GB-MHRA-MED-202510131338349450-YCSFT

PATIENT

DRUGS (1)
  1. SERTRALINE [Suspect]
     Active Substance: SERTRALINE HYDROCHLORIDE
     Indication: Product used for unknown indication
     Dosage: 50MG OD NOCTE
     Route: 065

REACTIONS (1)
  - Dizziness [Recovered/Resolved]
